FAERS Safety Report 7767077-7 (Version None)
Quarter: 2011Q3

REPORT INFORMATION
  Report Type: 
  Country: None (occurrence: None)
  Receive Date: 20110922
  Receipt Date: 20101104
  Transmission Date: 20111222
  Serious: No
  Sender: FDA-Public Use
  Company Number: US-ASTRAZENECA-2010SE52614

PATIENT
  Age: 52 Year
  Sex: Female
  Weight: 158.8 kg

DRUGS (1)
  1. SEROQUEL [Suspect]
     Indication: SLEEP DISORDER
     Route: 048
     Dates: start: 20070101

REACTIONS (3)
  - BACK PAIN [None]
  - BACK DISORDER [None]
  - INSOMNIA [None]
